FAERS Safety Report 21811285 (Version 2)
Quarter: 2023Q1

REPORT INFORMATION
  Report Type: Spontaneous
  Country: US (occurrence: US)
  Receive Date: 20230103
  Receipt Date: 20230103
  Transmission Date: 20230418
  Serious: No
  Sender: FDA-Public Use
  Company Number: US-PFIZER INC-202201397832

PATIENT
  Age: 78 Year
  Sex: Male

DRUGS (3)
  1. PAXLOVID [Suspect]
     Active Substance: NIRMATRELVIR\RITONAVIR
     Indication: COVID-19 treatment
     Dosage: UNK
  2. PREGABALIN [Concomitant]
     Active Substance: PREGABALIN
     Indication: Neuralgia
     Dosage: 450 MG, DAILY (NORMALLY TAKES 3 X 150 MG DAILY)
  3. PREGABALIN [Concomitant]
     Active Substance: PREGABALIN
     Dosage: UNK, DAILY (HAS CUT HIS PREGABALIN DAILY DOSAGE IN HALF)

REACTIONS (2)
  - Neuralgia [Unknown]
  - Disease recurrence [Unknown]
